FAERS Safety Report 6234882-8 (Version None)
Quarter: 2009Q2

REPORT INFORMATION
  Report Type: 
  Country: None (occurrence: None)
  Receive Date: 20090615
  Receipt Date: 20090514
  Transmission Date: 20091009
  Serious: No
  Sender: FDA-Public Use
  Company Number: DSA_33647_2009

PATIENT
  Sex: Female

DRUGS (4)
  1. XENAZINE [Suspect]
     Indication: CHOREA
     Dosage: 25 MG TID
     Dates: start: 20090101
  2. MORPHINE [Concomitant]
  3. LYRICA [Concomitant]
  4. BACLOFEN [Concomitant]

REACTIONS (4)
  - DIARRHOEA [None]
  - HYPERHIDROSIS [None]
  - PAIN [None]
  - PYREXIA [None]
